FAERS Safety Report 15824987 (Version 1)
Quarter: 2019Q1

REPORT INFORMATION
  Report Type: Spontaneous
  Country: US (occurrence: US)
  Receive Date: 20190115
  Receipt Date: 20190115
  Transmission Date: 20190417
  Serious: No
  Sender: FDA-Public Use
  Company Number: US-ELI_LILLY_AND_COMPANY-US201901003085

PATIENT
  Sex: Female

DRUGS (8)
  1. HUMATROPE [Suspect]
     Active Substance: SOMATROPIN
     Indication: EPIPHYSES PREMATURE FUSION
  2. LUPRON [Concomitant]
     Active Substance: LEUPROLIDE ACETATE
     Indication: BODY HEIGHT ABNORMAL
  3. HUMATROPE [Suspect]
     Active Substance: SOMATROPIN
     Indication: BODY HEIGHT ABNORMAL
  4. LUPRON [Concomitant]
     Active Substance: LEUPROLIDE ACETATE
     Indication: EPIPHYSES PREMATURE FUSION
  5. HUMATROPE [Suspect]
     Active Substance: SOMATROPIN
     Indication: PRECOCIOUS PUBERTY
  6. LUPRON [Concomitant]
     Active Substance: LEUPROLIDE ACETATE
     Indication: BODY HEIGHT BELOW NORMAL
  7. HUMATROPE [Suspect]
     Active Substance: SOMATROPIN
     Indication: BODY HEIGHT BELOW NORMAL
     Dosage: 1.8 MG, DAILY
     Route: 058
     Dates: start: 20181124
  8. LUPRON [Concomitant]
     Active Substance: LEUPROLIDE ACETATE
     Indication: PRECOCIOUS PUBERTY

REACTIONS (3)
  - Contusion [Unknown]
  - Hot flush [Unknown]
  - Injection site haemorrhage [Recovered/Resolved]
